FAERS Safety Report 12124621 (Version 1)
Quarter: 2016Q1

REPORT INFORMATION
  Report Type: Spontaneous
  Country: US (occurrence: US)
  Receive Date: 20160229
  Receipt Date: 20160229
  Transmission Date: 20160526
  Serious: No
  Sender: FDA-Public Use
  Company Number: US-009507513-1602USA010273

PATIENT
  Age: 71 Year
  Sex: Female

DRUGS (5)
  1. CLORAZEPATE DIPOTASSIUM. [Concomitant]
     Active Substance: CLORAZEPATE DIPOTASSIUM
  2. BELSOMRA [Suspect]
     Active Substance: SUVOREXANT
     Indication: INSOMNIA
     Dosage: 10 MG, QD
     Route: 048
     Dates: start: 20160218
  3. OMEPRAZOLE. [Concomitant]
     Active Substance: OMEPRAZOLE
  4. SERTRALINE HYDROCHLORIDE. [Concomitant]
     Active Substance: SERTRALINE HYDROCHLORIDE
  5. AMLODIPINE [Concomitant]
     Active Substance: AMLODIPINE BESYLATE

REACTIONS (5)
  - Somnolence [Unknown]
  - Drug ineffective [Unknown]
  - Confusional state [Unknown]
  - Mental impairment [Unknown]
  - Anxiety [Unknown]

NARRATIVE: CASE EVENT DATE: 20160218
